FAERS Safety Report 4844485-5 (Version None)
Quarter: 2005Q4

REPORT INFORMATION
  Report Type: 
  Country: None (occurrence: None)
  Receive Date: 20051203
  Receipt Date: 20051121
  Transmission Date: 20060501
  Serious: Yes (Hospitalization)
  Sender: FDA-Public Use
  Company Number: PHFR2005GB03813

PATIENT
  Age: 44 Year
  Sex: Male

DRUGS (1)
  1. ZOLEDRONATE [Suspect]
     Indication: OSTEOPOROSIS
     Dosage: 4 MG/DAY
     Route: 042

REACTIONS (3)
  - DYSPNOEA [None]
  - HYPERHIDROSIS [None]
  - PLEURITIC PAIN [None]
